FAERS Safety Report 5694489-8 (Version None)
Quarter: 2008Q2

REPORT INFORMATION
  Report Type: 
  Country: None (occurrence: None)
  Receive Date: 20080404
  Receipt Date: 20080325
  Transmission Date: 20081010
  Serious: Yes (Death, Other)
  Sender: FDA-Public Use
  Company Number: GB-ELI_LILLY_AND_COMPANY-GB200803005762

PATIENT
  Age: 52 Year
  Sex: Female

DRUGS (16)
  1. XIGRIS [Suspect]
     Dosage: 10.3 MG, IN 45 MINUTES
     Route: 042
     Dates: start: 20080324, end: 20080324
  2. CEFOTAXIME [Concomitant]
     Dosage: UNK, UNKNOWN
     Route: 042
  3. ERYTHROMYCIN [Concomitant]
     Dosage: UNK, UNKNOWN
     Route: 042
  4. HYDROCORTISONE [Concomitant]
     Dosage: UNK, UNKNOWN
     Route: 042
  5. LANSOPRAZOLE [Concomitant]
     Dosage: UNK, UNKNOWN
     Route: 042
  6. SALBUTAMOL [Concomitant]
     Dosage: UNK, UNKNOWN
     Route: 055
  7. ATROVENT [Concomitant]
     Dosage: UNK, UNKNOWN
     Route: 055
  8. VITAMIN K1 [Concomitant]
     Dosage: UNK, UNKNOWN
     Route: 042
  9. PABRINEX [Concomitant]
     Dosage: UNK, UNKNOWN
     Route: 042
  10. NUTRISON [Concomitant]
     Dosage: UNK, UNKNOWN
     Route: 050
  11. PROPOFOL [Concomitant]
     Dosage: UNK, UNKNOWN
     Route: 065
  12. ALFENTANIL [Concomitant]
     Dosage: UNK, UNKNOWN
     Route: 065
  13. NORADRENALINE [Concomitant]
     Dosage: UNK, UNKNOWN
     Route: 065
  14. POTASSIUM CHLORIDE [Concomitant]
     Dosage: UNK, UNKNOWN
     Route: 065
  15. ATRACURIUM BESYLATE [Concomitant]
     Dosage: UNK, UNKNOWN
     Route: 065
  16. MAGNESIUM [Concomitant]
     Dosage: UNK, UNKNOWN
     Route: 065

REACTIONS (2)
  - DEATH [None]
  - OVERDOSE [None]
